FAERS Safety Report 21971192 (Version 1)
Quarter: 2023Q1

REPORT INFORMATION
  Report Type: Report from Study
  Country: US (occurrence: US)
  Receive Date: 20230209
  Receipt Date: 20230209
  Transmission Date: 20230418
  Serious: Yes (Hospitalization)
  Sender: FDA-Public Use
  Company Number: US-ABBVIE-4299993

PATIENT
  Sex: Male
  Weight: 106.59 kg

DRUGS (2)
  1. RINVOQ [Suspect]
     Active Substance: UPADACITINIB
     Indication: Colitis ulcerative
     Dosage: FORM STRENGTH: 15 MILLIGRAM, FIRST ADMIN DATE 01 FEB 2022 AND LAST ADMIN DATE 27 JAN 2023
     Route: 048
  2. AUGMENTIN [Suspect]
     Active Substance: AMOXICILLIN\CLAVULANATE POTASSIUM
     Indication: Pharyngitis streptococcal
     Route: 065

REACTIONS (8)
  - Cardiomyopathy [Not Recovered/Not Resolved]
  - Pharyngitis streptococcal [Recovering/Resolving]
  - Hypertension [Recovering/Resolving]
  - Diarrhoea [Not Recovered/Not Resolved]
  - Pharyngeal swelling [Recovered/Resolved]
  - Dyspnoea [Recovered/Resolved]
  - Upper respiratory tract congestion [Recovering/Resolving]
  - Throat tightness [Unknown]

NARRATIVE: CASE EVENT DATE: 20220101
